FAERS Safety Report 22241372 (Version 1)
Quarter: 2023Q2

REPORT INFORMATION
  Report Type: Spontaneous
  Country: US (occurrence: US)
  Receive Date: 20230421
  Receipt Date: 20230421
  Transmission Date: 20230722
  Serious: No
  Sender: FDA-Public Use
  Company Number: US-002147023-NVSC2023US087674

PATIENT
  Age: 76 Year
  Sex: Female

DRUGS (2)
  1. LEQVIO [Suspect]
     Active Substance: INCLISIRAN SODIUM
     Indication: Product used for unknown indication
     Dosage: 284 MG, OTHER (INITIAL INJECTION, 3 MONTHS, AND TWICE A YEAR THEREAFTER)
     Route: 058
     Dates: start: 20221202
  2. LEQVIO [Suspect]
     Active Substance: INCLISIRAN SODIUM
     Dosage: UNK (3 MONTH DOSE)
     Route: 065
     Dates: start: 20230302

REACTIONS (1)
  - Pain in extremity [Unknown]
